FAERS Safety Report 14931120 (Version 2)
Quarter: 2018Q2

REPORT INFORMATION
  Report Type: Spontaneous
  Country: BR (occurrence: BR)
  Receive Date: 20180524
  Receipt Date: 20180622
  Transmission Date: 20180711
  Serious: Yes (Other)
  Sender: FDA-Public Use
  Company Number: BR-ALEXION PHARMACEUTICALS INC.-A201806010

PATIENT
  Age: 37 Year
  Sex: Female

DRUGS (2)
  1. SOLIRIS [Suspect]
     Active Substance: ECULIZUMAB
     Indication: PAROXYSMAL NOCTURNAL HAEMOGLOBINURIA
     Dosage: 600 MG EVERY 7 DAYS
     Route: 042
     Dates: start: 20150908, end: 20150929
  2. SOLIRIS [Suspect]
     Active Substance: ECULIZUMAB
     Dosage: 900 MG EVERY 14 DAYS
     Route: 042
     Dates: start: 20151006

REACTIONS (14)
  - Localised infection [Unknown]
  - Joint swelling [Unknown]
  - Bone pain [Unknown]
  - Contusion [Unknown]
  - Road traffic accident [Unknown]
  - Burning sensation [Unknown]
  - Peripheral swelling [Unknown]
  - Limb injury [Unknown]
  - Condition aggravated [Unknown]
  - Lymphadenopathy [Unknown]
  - Pain in extremity [Unknown]
  - Gait inability [Unknown]
  - Lymph node pain [Unknown]
  - Asthenia [Unknown]

NARRATIVE: CASE EVENT DATE: 20180503
